FAERS Safety Report 5575732-2 (Version None)
Quarter: 2007Q4

REPORT INFORMATION
  Report Type: 
  Country: None (occurrence: None)
  Receive Date: 20071130
  Receipt Date: 20070924
  Transmission Date: 20080405
  Serious: No
  Sender: FDA-Public Use
  Company Number: US200709005878

PATIENT
  Age: 57 Year
  Sex: Male
  Weight: 104.3 kg

DRUGS (7)
  1. BYETTA [Suspect]
     Indication: INSULIN-REQUIRING TYPE II DIABETES MELLITUS
     Dosage: 5 UG, 2/D, SUBCUTANEOUS
     Route: 058
     Dates: start: 20070830
  2. METFORMIN HCL [Concomitant]
  3. GLIPIZIDE XL (GLIPIZIDE) [Concomitant]
  4. LANTUS [Concomitant]
  5. AVANDIA [Concomitant]
  6. ASACOL [Concomitant]
  7. ROWASA [Concomitant]

REACTIONS (4)
  - BLOOD GLUCOSE DECREASED [None]
  - BLOOD GLUCOSE INCREASED [None]
  - NAUSEA [None]
  - TREMOR [None]
